FAERS Safety Report 9275809 (Version 1)
Quarter: 2013Q2

REPORT INFORMATION
  Report Type: Spontaneous
  Country: US (occurrence: US)
  Receive Date: 20130507
  Receipt Date: 20130507
  Transmission Date: 20140414
  Serious: Yes (Other)
  Sender: FDA-Public Use
  Company Number: US-BAYER-2013-054646

PATIENT
  Sex: Female
  Weight: 74.83 kg

DRUGS (6)
  1. BETASERON [Suspect]
     Indication: MULTIPLE SCLEROSIS
     Dosage: 0.25 MG, QOD
     Route: 058
  2. LEVOXYL [Concomitant]
     Dosage: 100 ?G, UNK
  3. OMEGA 3-6-9 [Concomitant]
     Dosage: 6-9  CAP COMPLEX
  4. RISEDRONATE SODIUM [Concomitant]
  5. PROMETRIUM [Concomitant]
     Dosage: 100 MG, UNK
  6. ESTRADIOL [Concomitant]
     Dosage: 0.5 MG, UNK

REACTIONS (4)
  - Osteoporosis [Unknown]
  - Thyroid disorder [Unknown]
  - Muscle spasms [None]
  - Injection site reaction [Unknown]
